FAERS Safety Report 23386983 (Version 1)
Quarter: 2024Q1

REPORT INFORMATION
  Report Type: Spontaneous
  Country: US (occurrence: US)
  Receive Date: 20240110
  Receipt Date: 20240110
  Transmission Date: 20240410
  Serious: Yes (Other)
  Sender: FDA-Public Use
  Company Number: US-Accord-400128

PATIENT
  Age: 51 Year
  Sex: Male

DRUGS (2)
  1. MITOMYCIN [Suspect]
     Active Substance: MITOMYCIN
     Indication: Adenocarcinoma
     Route: 033
  2. MITOMYCIN [Suspect]
     Active Substance: MITOMYCIN
     Indication: Pseudomyxoma peritonei

REACTIONS (2)
  - Skin necrosis [Unknown]
  - Off label use [Unknown]
